FAERS Safety Report 18600976 (Version 2)
Quarter: 2020Q4

REPORT INFORMATION
  Report Type: Spontaneous
  Country: US (occurrence: US)
  Receive Date: 20201210
  Receipt Date: 20201211
  Transmission Date: 20210114
  Serious: Yes (Other)
  Sender: FDA-Public Use
  Company Number: US-JNJFOC-20201208863

PATIENT
  Sex: Male

DRUGS (2)
  1. RISPERDAL [Suspect]
     Active Substance: RISPERIDONE
     Indication: POST-TRAUMATIC STRESS DISORDER
  2. RISPERDAL [Suspect]
     Active Substance: RISPERIDONE
     Indication: ATTENTION DEFICIT HYPERACTIVITY DISORDER
     Route: 048
     Dates: start: 2015

REACTIONS (8)
  - Off label use [Unknown]
  - Gynaecomastia [Unknown]
  - Hypertension [Unknown]
  - Galactorrhoea [Unknown]
  - Weight increased [Unknown]
  - Suicide attempt [Unknown]
  - Anger [Unknown]
  - Product use in unapproved indication [Unknown]
